FAERS Safety Report 6966908-8 (Version None)
Quarter: 2010Q3

REPORT INFORMATION
  Report Type: 
  Country: None (occurrence: None)
  Receive Date: 20100906
  Receipt Date: 20100902
  Transmission Date: 20110219
  Serious: Yes (Death, Hospitalization)
  Sender: FDA-Public Use
  Company Number: PHHY2010CA54516

PATIENT
  Sex: Male

DRUGS (2)
  1. CLOZARIL [Suspect]
     Indication: SCHIZOPHRENIA
     Dosage: 250 MG/DAY
     Route: 048
     Dates: start: 20100201
  2. WELLBUTRIN [Concomitant]
     Dosage: 150 MG DAILY
     Route: 048

REACTIONS (5)
  - ABDOMINAL DISCOMFORT [None]
  - BLOOD TEST ABNORMAL [None]
  - NARCOTIC INTOXICATION [None]
  - NEUTROPHIL COUNT INCREASED [None]
  - WHITE BLOOD CELL COUNT INCREASED [None]
